FAERS Safety Report 14285657 (Version 1)
Quarter: 2017Q4

REPORT INFORMATION
  Report Type: Spontaneous
  Country: US (occurrence: US)
  Receive Date: 20171214
  Receipt Date: 20171214
  Transmission Date: 20180321
  Serious: No
  Sender: FDA-Public Use
  Company Number: US-ASTELLAS-2017US027651

PATIENT
  Age: 48 Year
  Sex: Male

DRUGS (1)
  1. TARCEVA [Suspect]
     Active Substance: ERLOTINIB HYDROCHLORIDE
     Indication: PRODUCT USED FOR UNKNOWN INDICATION
     Dosage: 150 (UNIT NOT REPORTED), ONCE DAILY
     Route: 048

REACTIONS (3)
  - Rash [Unknown]
  - Epigastric discomfort [Unknown]
  - Acne [Unknown]
